FAERS Safety Report 9300835 (Version 1)
Quarter: 2013Q2

REPORT INFORMATION
  Report Type: Spontaneous
  Country: US (occurrence: US)
  Receive Date: 20130521
  Receipt Date: 20130521
  Transmission Date: 20140414
  Serious: Yes (Other)
  Sender: FDA-Public Use
  Company Number: US-JNJFOC-20130506272

PATIENT
  Sex: Female
  Weight: 52.16 kg

DRUGS (9)
  1. DURAGESIC [Suspect]
     Indication: ARTHRITIS
     Route: 062
     Dates: start: 19981228
  2. DURAGESIC [Suspect]
     Indication: FIBROMYALGIA
     Route: 062
     Dates: start: 19981228
  3. DURAGESIC [Suspect]
     Indication: ARTHRITIS
     Route: 062
     Dates: end: 2010
  4. DURAGESIC [Suspect]
     Indication: FIBROMYALGIA
     Route: 062
     Dates: end: 2010
  5. SANDOZ FENTANYL TRANSDERMAL SYSTEM [Suspect]
     Indication: ARTHRITIS
     Route: 062
     Dates: start: 2010, end: 20130219
  6. SANDOZ FENTANYL TRANSDERMAL SYSTEM [Suspect]
     Indication: ARTHRITIS
     Route: 062
     Dates: start: 20130219
  7. SANDOZ FENTANYL TRANSDERMAL SYSTEM [Suspect]
     Indication: FIBROMYALGIA
     Route: 062
     Dates: start: 20130219
  8. SANDOZ FENTANYL TRANSDERMAL SYSTEM [Suspect]
     Indication: FIBROMYALGIA
     Route: 062
     Dates: start: 2010, end: 20130219
  9. SYNTHROID [Concomitant]
     Indication: HYPOTHYROIDISM
     Route: 048
     Dates: start: 1998

REACTIONS (9)
  - Ear infection [Unknown]
  - Drug withdrawal syndrome [Recovered/Resolved]
  - Meniere^s disease [Unknown]
  - Deafness [Unknown]
  - Stress [Unknown]
  - Emotional disorder [Not Recovered/Not Resolved]
  - Balance disorder [Unknown]
  - Dizziness [Unknown]
  - Drug ineffective [Unknown]
